FAERS Safety Report 6976552-4 (Version None)
Quarter: 2010Q3

REPORT INFORMATION
  Report Type: 
  Country: None (occurrence: None)
  Receive Date: 20100910
  Receipt Date: 20100906
  Transmission Date: 20110219
  Serious: No
  Sender: FDA-Public Use
  Company Number: US-B.I. PHARMACEUTICALS,INC./RIDGEFIELD-2010-BP-10188BP

PATIENT
  Age: 75 Year
  Sex: Female

DRUGS (4)
  1. MICARDIS HCT [Suspect]
     Indication: HYPERTENSION
     Dosage: 80MG/25MG ONE TABLET DAILY
     Route: 048
     Dates: start: 20080101
  2. POTASSIUM [Concomitant]
     Indication: BLOOD POTASSIUM DECREASED
  3. ZOLOFT [Concomitant]
     Indication: ANXIETY
  4. LIPITOR [Concomitant]
     Indication: BLOOD CHOLESTEROL INCREASED

REACTIONS (3)
  - HERPES ZOSTER [None]
  - PRURITUS [None]
  - RASH [None]
